FAERS Safety Report 7131347-6 (Version None)
Quarter: 2010Q4

REPORT INFORMATION
  Report Type: 
  Country: None (occurrence: None)
  Receive Date: 20101201
  Receipt Date: 20101124
  Transmission Date: 20110411
  Serious: Yes (Hospitalization)
  Sender: FDA-Public Use
  Company Number: JP-ABBOTT-10P-087-0671451-00

PATIENT
  Sex: Female
  Weight: 50 kg

DRUGS (14)
  1. HUMIRA [Suspect]
     Indication: RHEUMATOID ARTHRITIS
     Route: 058
     Dates: start: 20100617, end: 20100727
  2. WARFARIN POTASSIUM [Suspect]
     Indication: ANTICOAGULANT THERAPY
     Route: 048
     Dates: end: 20100805
  3. WARFARIN POTASSIUM [Suspect]
     Route: 048
     Dates: start: 20100806, end: 20100815
  4. WARFARIN POTASSIUM [Suspect]
     Route: 048
     Dates: start: 20100821, end: 20100831
  5. WARFARIN POTASSIUM [Suspect]
     Route: 048
     Dates: start: 20100905, end: 20100907
  6. WARFARIN POTASSIUM [Suspect]
     Route: 048
     Dates: start: 20100910, end: 20100921
  7. WARFARIN POTASSIUM [Suspect]
     Route: 048
     Dates: start: 20100922, end: 20101109
  8. WARFARIN POTASSIUM [Suspect]
     Route: 048
     Dates: start: 20101110
  9. METHOTREXATE [Concomitant]
     Indication: RHEUMATOID ARTHRITIS
     Route: 048
  10. FOLIC ACID [Concomitant]
     Indication: PROPHYLAXIS
     Route: 048
  11. FOLIC ACID [Concomitant]
     Indication: ADVERSE EVENT
  12. CELECOXIB [Concomitant]
     Indication: RHEUMATOID ARTHRITIS
     Route: 048
  13. METHYLPREDNISOLONE [Concomitant]
     Indication: RHEUMATOID ARTHRITIS
     Route: 048
  14. LEVOFLOXACIN HYDRATE [Concomitant]
     Indication: PRODUCT USED FOR UNKNOWN INDICATION
     Dates: start: 20100812, end: 20100816

REACTIONS (6)
  - ASTHMA [None]
  - CONJUNCTIVAL HAEMORRHAGE [None]
  - HAEMORRHAGE SUBCUTANEOUS [None]
  - INTERNATIONAL NORMALISED RATIO INCREASED [None]
  - MOUTH HAEMORRHAGE [None]
  - PROTHROMBIN TIME PROLONGED [None]
